FAERS Safety Report 9106250 (Version 1)
Quarter: 2013Q1

REPORT INFORMATION
  Report Type: Spontaneous
  Country: US (occurrence: US)
  Receive Date: 20130221
  Receipt Date: 20130221
  Transmission Date: 20140127
  Serious: No
  Sender: FDA-Public Use
  Company Number: US-009507513-1302USA009974

PATIENT
  Sex: Female

DRUGS (2)
  1. CORICIDIN HBP COUGH AND COLD [Suspect]
     Indication: SINUS DISORDER
     Dosage: UNK, UNKNOWN
     Route: 048
  2. BENADRYL [Concomitant]
     Indication: SOMNOLENCE
     Dosage: UNK, UNKNOWN

REACTIONS (2)
  - Drug ineffective for unapproved indication [Unknown]
  - Off label use [Unknown]
